FAERS Safety Report 9773131 (Version 1)
Quarter: 2013Q4

REPORT INFORMATION
  Report Type: Spontaneous
  Country: GB (occurrence: GB)
  Receive Date: 20131219
  Receipt Date: 20131219
  Transmission Date: 20140711
  Serious: Yes (Other)
  Sender: FDA-Public Use
  Company Number: GB-WATSON-2013-23130

PATIENT
  Sex: 0

DRUGS (7)
  1. MYCOPHENOLATE MOFETIL (UNKNOWN) [Suspect]
     Indication: PRODUCT USED FOR UNKNOWN INDICATION
     Dosage: 500 MG, BID
     Route: 065
  2. MYCOPHENOLATE MOFETIL (UNKNOWN) [Suspect]
     Dosage: 750 MG, BID
     Route: 065
  3. PREDNISOLONE (UNKNOWN) [Suspect]
     Indication: PRODUCT USED FOR UNKNOWN INDICATION
     Dosage: 10 MG, UNKNOWN
     Route: 065
  4. RIBAVIRIN [Suspect]
     Indication: HEPATITIS C
     Dosage: UNK
     Route: 065
  5. RIBAVIRIN [Suspect]
     Dosage: UNK
     Route: 065
  6. INTERFERON [Suspect]
     Indication: HEPATITIS C
     Dosage: UNK
     Route: 065
  7. TELAPREVIR [Suspect]
     Indication: HEPATITIS C
     Dosage: UNK
     Route: 048

REACTIONS (3)
  - Neutrophil count decreased [Unknown]
  - Blood count abnormal [Unknown]
  - Off label use [Recovered/Resolved]
